FAERS Safety Report 8008013-8 (Version None)
Quarter: 2011Q4

REPORT INFORMATION
  Report Type: 
  Country: None (occurrence: None)
  Receive Date: 20111123
  Receipt Date: 20110920
  Transmission Date: 20120403
  Serious: No
  Sender: FDA-Public Use
  Company Number: 336904

PATIENT
  Age: 66 Year
  Sex: Female

DRUGS (3)
  1. METFORMIN HCL [Concomitant]
  2. VICTOZA [Suspect]
     Indication: TYPE 2 DIABETES MELLITUS
     Dosage: 1.8 MG, EVERY OTHER DAY, SUBCUTANEOUS
     Route: 058
     Dates: start: 20110601
  3. GLIPIZIDE [Concomitant]

REACTIONS (2)
  - WEIGHT DECREASED [None]
  - BLOOD GLUCOSE DECREASED [None]
